FAERS Safety Report 8132719-3 (Version None)
Quarter: 2012Q1

REPORT INFORMATION
  Report Type: 
  Country: None (occurrence: None)
  Receive Date: 20120213
  Receipt Date: 20120203
  Transmission Date: 20120608
  Serious: Yes (Death, Hospitalization, Other)
  Sender: FDA-Public Use
  Company Number: GB-PFIZER INC-2012016133

PATIENT
  Age: 69 Year
  Sex: Female

DRUGS (12)
  1. LUCENTIS [Suspect]
  2. WARFARIN SODIUM [Concomitant]
  3. AMIODARONE HCL [Suspect]
     Dosage: 200 MG, UNK
  4. OMEPRAZOLE [Concomitant]
  5. RAMIPRIL [Concomitant]
  6. GLYCERYL TRINITRATE [Concomitant]
  7. FUROSEMIDE [Concomitant]
  8. EPADERM [Concomitant]
  9. ALENDRONIC ACID [Concomitant]
  10. PARACETAMOL [Concomitant]
  11. BISOPROLOL [Concomitant]
  12. CALCEOS [Concomitant]

REACTIONS (5)
  - PNEUMONITIS [None]
  - ATRIAL FIBRILLATION [None]
  - MYOCARDIAL INFARCTION [None]
  - TRANSIENT ISCHAEMIC ATTACK [None]
  - PNEUMONIA [None]
